FAERS Safety Report 5169976-1 (Version None)
Quarter: 2006Q4

REPORT INFORMATION
  Report Type: 
  Country: None (occurrence: None)
  Receive Date: 20061212
  Receipt Date: 20061208
  Transmission Date: 20070319
  Serious: Yes (Hospitalization)
  Sender: FDA-Public Use
  Company Number: US-GLAXOSMITHKLINE-A0630932A

PATIENT
  Age: 79 Year
  Sex: Male

DRUGS (1)
  1. CEFAZOLIN [Suspect]
     Indication: DRUG USE FOR UNKNOWN INDICATION
     Dosage: 2G FOUR TIMES PER DAY
     Route: 042
     Dates: start: 20061205

REACTIONS (2)
  - DRUG ADMINISTRATION ERROR [None]
  - EXTRAVASATION [None]
